FAERS Safety Report 4889285-5 (Version None)
Quarter: 2006Q1

REPORT INFORMATION
  Report Type: 
  Country: None (occurrence: None)
  Receive Date: 20060120
  Receipt Date: 20060120
  Transmission Date: 20060701
  Serious: Yes (Hospitalization)
  Sender: FDA-Public Use
  Company Number: None

PATIENT
  Age: 48 Year
  Sex: Female

DRUGS (1)
  1. LOESTRIN 21 1/20 [Suspect]
     Indication: MENOPAUSAL SYMPTOMS
     Dosage: 1/20   QD

REACTIONS (1)
  - PULMONARY EMBOLISM [None]
